FAERS Safety Report 24914795 (Version 1)
Quarter: 2025Q1

REPORT INFORMATION
  Report Type: Spontaneous
  Country: CA (occurrence: CA)
  Receive Date: 20250203
  Receipt Date: 20250203
  Transmission Date: 20250408
  Serious: Yes (Other)
  Sender: INTERCEPT PHARMACEUTICALS
  Company Number: CA-ADVANZ PHARMA-202501000532

PATIENT
  Age: 58 Year
  Sex: Female

DRUGS (2)
  1. OCALIVA [Suspect]
     Active Substance: OBETICHOLIC ACID
     Indication: Primary biliary cholangitis
     Route: 048
     Dates: start: 20230621
  2. OCALIVA [Suspect]
     Active Substance: OBETICHOLIC ACID
     Route: 048
     Dates: start: 202404

REACTIONS (2)
  - Disease progression [Unknown]
  - Primary biliary cholangitis [Unknown]
